FAERS Safety Report 11661597 (Version 2)
Quarter: 2016Q1

REPORT INFORMATION
  Report Type: Report from Study
  Country: US (occurrence: US)
  Receive Date: 20151026
  Receipt Date: 20160126
  Transmission Date: 20160525
  Serious: Yes (Hospitalization, Other)
  Sender: FDA-Public Use
  Company Number: PHEH2015US021326

PATIENT
  Age: 32 Year
  Sex: Male
  Weight: 116 kg

DRUGS (1)
  1. ENTRESTO [Suspect]
     Active Substance: SACUBITRIL\VALSARTAN
     Indication: CARDIOMYOPATHY
     Dosage: 100 MG, BID
     Route: 048
     Dates: start: 20151009, end: 20151018

REACTIONS (3)
  - Hypercalcaemia [Not Recovered/Not Resolved]
  - Hyperkalaemia [Recovered/Resolved]
  - Off label use [Unknown]

NARRATIVE: CASE EVENT DATE: 20151016
